FAERS Safety Report 6466329-0 (Version None)
Quarter: 2009Q4

REPORT INFORMATION
  Report Type: 
  Country: None (occurrence: None)
  Receive Date: 20091202
  Receipt Date: 20091119
  Transmission Date: 20100525
  Serious: Yes (Other)
  Sender: FDA-Public Use
  Company Number: PHHY2009MX51135

PATIENT
  Age: 93 Year
  Sex: Female

DRUGS (1)
  1. DIOVAN HCT [Suspect]
     Indication: HYPERTENSION
     Dosage: 160/12.5 MG PER DAY
     Dates: start: 20090901, end: 20091001

REACTIONS (2)
  - ANGINA PECTORIS [None]
  - HYPOTENSION [None]
